FAERS Safety Report 5788859-7 (Version None)
Quarter: 2008Q2

REPORT INFORMATION
  Report Type: 
  Country: None (occurrence: None)
  Receive Date: 20080626
  Receipt Date: 20080618
  Transmission Date: 20081010
  Serious: Yes (Other)
  Sender: FDA-Public Use
  Company Number: US-BAYER-200812529BCC

PATIENT
  Sex: Male

DRUGS (1)
  1. ORIGINAL ALKA-SELTZER TABLETS [Suspect]
     Indication: ANALGESIA
     Route: 048

REACTIONS (1)
  - DRUG DEPENDENCE [None]
